FAERS Safety Report 10383042 (Version 1)
Quarter: 2014Q3

REPORT INFORMATION
  Report Type: Spontaneous
  Country: US (occurrence: US)
  Receive Date: 20140813
  Receipt Date: 20140813
  Transmission Date: 20150326
  Serious: No
  Sender: FDA-Public Use
  Company Number: US-SA-2014SA095920

PATIENT
  Age: 48 Year
  Sex: Male
  Weight: 88.45 kg

DRUGS (23)
  1. WATER FOR INJECTION [Concomitant]
     Active Substance: WATER
  2. EPIPEN [Concomitant]
     Active Substance: EPINEPHRINE
  3. AMOXICILLIN. [Concomitant]
     Active Substance: AMOXICILLIN
  4. NABUMETONE. [Concomitant]
     Active Substance: NABUMETONE
  5. PREDNISONE. [Concomitant]
     Active Substance: PREDNISONE
  6. LIDOCAINE/PRILOCAINE [Concomitant]
  7. PRAVASTATIN [Concomitant]
     Active Substance: PRAVASTATIN\PRAVASTATIN SODIUM
  8. FABRAZYME [Suspect]
     Active Substance: AGALSIDASE BETA
     Indication: FABRY^S DISEASE
     Route: 042
     Dates: start: 20110831
  9. MULTIVITAMINS [Concomitant]
     Active Substance: VITAMINS
  10. ASPIRIN. [Concomitant]
     Active Substance: ASPIRIN
  11. DIPHENHYDRAMINE [Concomitant]
     Active Substance: DIPHENHYDRAMINE
  12. NORMAL SALINE [Concomitant]
     Active Substance: SODIUM CHLORIDE
  13. SODIUM CHLORIDE. [Concomitant]
     Active Substance: SODIUM CHLORIDE
  14. HYDROCHLOROTHIAZIDE. [Concomitant]
     Active Substance: HYDROCHLOROTHIAZIDE
  15. FLONASE [Concomitant]
     Active Substance: FLUTICASONE PROPIONATE
  16. ADVAIR HFA [Concomitant]
     Active Substance: FLUTICASONE PROPIONATE\SALMETEROL XINAFOATE
  17. COUMADIN [Concomitant]
     Active Substance: WARFARIN SODIUM
  18. LOSARTAN [Concomitant]
     Active Substance: LOSARTAN
  19. SINGULAIR [Concomitant]
     Active Substance: MONTELUKAST SODIUM
  20. MECLIZINE [Concomitant]
     Active Substance: MECLIZINE\MECLIZINE HYDROCHLORIDE
  21. FABRAZYME [Suspect]
     Active Substance: AGALSIDASE BETA
     Indication: FABRY^S DISEASE
     Route: 042
     Dates: start: 20110831
  22. LIDOCAINE. [Concomitant]
     Active Substance: LIDOCAINE
  23. COZAAR [Concomitant]
     Active Substance: LOSARTAN POTASSIUM

REACTIONS (2)
  - Nasal congestion [Unknown]
  - Paranasal sinus hypersecretion [Unknown]

NARRATIVE: CASE EVENT DATE: 20140711
